FAERS Safety Report 9597189 (Version 1)
Quarter: 2013Q4

REPORT INFORMATION
  Report Type: Spontaneous
  Country: US (occurrence: US)
  Receive Date: 20131004
  Receipt Date: 20131004
  Transmission Date: 20140711
  Serious: No
  Sender: FDA-Public Use
  Company Number: US-AMGEN-USASP2013017788

PATIENT
  Age: 63 Year
  Sex: Female
  Weight: 88.44 kg

DRUGS (13)
  1. ENBREL [Suspect]
     Indication: RHEUMATOID ARTHRITIS
     Dosage: 50 MG, QWK
     Route: 058
     Dates: start: 201201, end: 201206
  2. NEURONTIN [Concomitant]
     Dosage: UNK
  3. METOPROLOL [Concomitant]
     Dosage: UNK
  4. DIOVAN [Concomitant]
     Dosage: UNK
  5. ASA [Concomitant]
     Dosage: 81 MG, UNK
  6. VENTOLIN                           /00139501/ [Concomitant]
     Dosage: UNK
  7. TYLENOL                            /00020001/ [Concomitant]
     Dosage: UNK
  8. FLOVENT [Concomitant]
     Dosage: UNK
  9. TRAMADOL [Concomitant]
     Dosage: UNK
  10. CYMBALTA [Concomitant]
     Dosage: UNK
  11. NEXIUM                             /01479302/ [Concomitant]
     Dosage: UNK
  12. HUMIRA [Concomitant]
     Dosage: UNK
  13. ORENCIA [Concomitant]
     Dosage: UNK

REACTIONS (2)
  - Rheumatoid arthritis [Not Recovered/Not Resolved]
  - Drug ineffective [Not Recovered/Not Resolved]
